FAERS Safety Report 19183431 (Version 3)
Quarter: 2021Q2

REPORT INFORMATION
  Report Type: Report from Study
  Country: US (occurrence: US)
  Receive Date: 20210427
  Receipt Date: 20210618
  Transmission Date: 20210717
  Serious: Yes (Hospitalization, Other)
  Sender: FDA-Public Use
  Company Number: US-TEVA-2021-US-1902523

PATIENT
  Age: 66 Year
  Sex: Female

DRUGS (3)
  1. AUSTEDO [Suspect]
     Active Substance: DEUTETRABENAZINE
     Dosage: 42 MILLIGRAM DAILY;
     Route: 065
     Dates: start: 2021
  2. OXYCODONE [Suspect]
     Active Substance: OXYCODONE
     Indication: PROCEDURAL PAIN
     Route: 065
  3. AUSTEDO [Suspect]
     Active Substance: DEUTETRABENAZINE
     Indication: TARDIVE DYSKINESIA
     Dosage: 36 MILLIGRAM DAILY; 9 MG + 9 MG TWICE A DAY
     Route: 065
     Dates: start: 20210313

REACTIONS (18)
  - Dyskinesia [Not Recovered/Not Resolved]
  - Joint injury [Unknown]
  - Joint dislocation [Unknown]
  - Feeling abnormal [Unknown]
  - Arthritis infective [Unknown]
  - Psychotic disorder [Unknown]
  - Fall [Unknown]
  - Pelvic pain [Unknown]
  - Pelvic fracture [Unknown]
  - Gait disturbance [Unknown]
  - Balance disorder [Unknown]
  - Hospitalisation [Unknown]
  - Confusional state [Unknown]
  - Mental impairment [Unknown]
  - Fatigue [Unknown]
  - Muscular weakness [Unknown]
  - Muscle tightness [Unknown]
  - Stupor [Unknown]

NARRATIVE: CASE EVENT DATE: 2021
